FAERS Safety Report 6670728-1 (Version None)
Quarter: 2010Q2

REPORT INFORMATION
  Report Type: 
  Country: None (occurrence: None)
  Receive Date: 20100405
  Receipt Date: 20100324
  Transmission Date: 20101027
  Serious: Yes (Hospitalization)
  Sender: FDA-Public Use
  Company Number: 1000008300

PATIENT
  Age: 57 Year
  Sex: Female
  Weight: 94.575 kg

DRUGS (11)
  1. MILNACIPRAN (OPEN-LABEL) (MILNACIPRAN HYDROCHLORIDE) [Suspect]
     Indication: FIBROMYALGIA
     Dosage: 200 MG, ORAL
     Route: 048
     Dates: start: 20080519
  2. BACTRIM [Suspect]
     Indication: SWEAT GLAND INFECTION
     Dates: start: 20090701, end: 20090701
  3. PRILOSEC [Concomitant]
  4. SPIRIVA [Concomitant]
  5. ADVAIR DISKUS 100/50 [Concomitant]
  6. YAZ [Concomitant]
  7. XOPENEX [Concomitant]
  8. ALBUTEROL [Concomitant]
  9. VICODIN [Concomitant]
  10. FLEXERIL [Concomitant]
  11. LEVOTHYROXINE [Concomitant]

REACTIONS (1)
  - ANGIOEDEMA [None]
